FAERS Safety Report 4602247-8 (Version None)
Quarter: 2005Q1

REPORT INFORMATION
  Report Type: 
  Country: None (occurrence: None)
  Receive Date: 20050201
  Receipt Date: 20031203
  Transmission Date: 20050727
  Serious: Yes (Hospitalization)
  Sender: FDA-Public Use
  Company Number: 200329348BWH

PATIENT
  Sex: Male

DRUGS (2)
  1. AVELOX [Suspect]
     Indication: SINUSITIS
     Dosage: 400 MG, QD, ORAL
     Route: 048
     Dates: start: 20031122, end: 20031124
  2. IBUPROFEN [Suspect]
     Indication: BRONCHITIS
     Dosage: 200 MG, ONCE
     Dates: start: 20031124

REACTIONS (2)
  - DYSPNOEA [None]
  - URTICARIA [None]
